FAERS Safety Report 14217221 (Version 1)
Quarter: 2017Q4

REPORT INFORMATION
  Report Type: Spontaneous
  Country: US (occurrence: US)
  Receive Date: 20171123
  Receipt Date: 20171123
  Transmission Date: 20180321
  Serious: Yes (Hospitalization, Other)
  Sender: FDA-Public Use
  Company Number: US-AMGEN-USASP2017173626

PATIENT
  Age: 56 Year
  Sex: Female

DRUGS (1)
  1. IMLYGIC [Suspect]
     Active Substance: TALIMOGENE LAHERPAREPVEC
     Indication: MALIGNANT MELANOMA
     Dosage: UNK
     Route: 026
     Dates: start: 2017

REACTIONS (4)
  - Metastases to central nervous system [Recovering/Resolving]
  - Metastases to liver [Recovering/Resolving]
  - Influenza like illness [Recovered/Resolved]
  - Hepatic haemorrhage [Recovering/Resolving]

NARRATIVE: CASE EVENT DATE: 2017
